FAERS Safety Report 17027810 (Version 1)
Quarter: 2019Q4

REPORT INFORMATION
  Report Type: Spontaneous
  Country: CN (occurrence: CN)
  Receive Date: 20191113
  Receipt Date: 20191113
  Transmission Date: 20200122
  Serious: Yes (Other)
  Sender: FDA-Public Use
  Company Number: CN-ALLERGAN-1946004US

PATIENT
  Sex: Female
  Weight: 50 kg

DRUGS (2)
  1. CEFTAZIDIME;AVIBACTAM - BP [Suspect]
     Active Substance: AVIBACTAM SODIUM\CEFTAZIDIME
     Indication: BRONCHOPULMONARY ASPERGILLOSIS
     Dosage: 2.5 G, TID
     Route: 042
     Dates: start: 20190912, end: 20190913
  2. AMIKACIN SULFATE. [Concomitant]
     Active Substance: AMIKACIN SULFATE
     Indication: ANTI-INFECTIVE THERAPY
     Dosage: UNK
     Dates: start: 20190913, end: 20190913

REACTIONS (5)
  - Product use in unapproved indication [Unknown]
  - Vomiting [Recovered/Resolved]
  - Blood potassium decreased [Unknown]
  - Supraventricular extrasystoles [Unknown]
  - Off label use [Unknown]

NARRATIVE: CASE EVENT DATE: 2019
